FAERS Safety Report 24306165 (Version 1)
Quarter: 2024Q3

REPORT INFORMATION
  Report Type: Report from Study
  Country: US (occurrence: US)
  Receive Date: 20240911
  Receipt Date: 20240911
  Transmission Date: 20241016
  Serious: Yes (Hospitalization)
  Sender: AMGEN
  Company Number: US-AMGEN-USASL2024135143

PATIENT
  Age: 64 Year
  Sex: Male

DRUGS (1)
  1. KRYSTEXXA [Suspect]
     Active Substance: PEGLOTICASE
     Indication: Product used for unknown indication
     Dosage: UNK
     Route: 042

REACTIONS (7)
  - Dizziness [Unknown]
  - Thirst [Unknown]
  - Hypoaesthesia oral [Unknown]
  - Blood glucose increased [Unknown]
  - Muscular weakness [Unknown]
  - Hypertension [Unknown]
  - Condition aggravated [Recovering/Resolving]
